FAERS Safety Report 13839227 (Version 1)
Quarter: 2017Q3

REPORT INFORMATION
  Report Type: Spontaneous
  Country: US (occurrence: US)
  Receive Date: 20170805
  Receipt Date: 20170805
  Transmission Date: 20171127
  Serious: Yes (Hospitalization)
  Sender: FDA-Public Use
  Company Number: None

PATIENT
  Age: 57 Year
  Sex: Male

DRUGS (4)
  1. ORENCIA [Suspect]
     Active Substance: ABATACEPT
     Indication: RHEUMATOID ARTHRITIS
     Dosage: 1 SYR (125MG) QWK SQ
     Route: 058
     Dates: start: 20160708
  2. PROAIR HFA [Concomitant]
     Active Substance: ALBUTEROL SULFATE
  3. LEFLUNOMICE [Concomitant]
  4. DULERA [Concomitant]
     Active Substance: FORMOTEROL FUMARATE DIHYDRATE\MOMETASONE FUROATE

REACTIONS (3)
  - Pain [None]
  - Condition aggravated [None]
  - Pneumonia [None]

NARRATIVE: CASE EVENT DATE: 201705
